FAERS Safety Report 5144397-6 (Version None)
Quarter: 2006Q4

REPORT INFORMATION
  Report Type: 
  Country: None (occurrence: None)
  Receive Date: 20061030
  Receipt Date: 20061017
  Transmission Date: 20070319
  Serious: No
  Sender: FDA-Public Use
  Company Number: 2006098943

PATIENT
  Sex: Female
  Weight: 74.8435 kg

DRUGS (2)
  1. ZMAX [Suspect]
     Indication: BRONCHITIS
     Dates: start: 20060522
  2. MAGNESIUM OXIDE (MAGNESIUM OXIDE) [Suspect]
     Indication: BLOOD MAGNESIUM DECREASED
     Dosage: 800 MG (400 MG, FREQUENCY:  BID INTERVAL:  EVERYDAY)
     Dates: start: 20060526, end: 20060528

REACTIONS (6)
  - BLOOD MAGNESIUM DECREASED [None]
  - DRUG INTERACTION [None]
  - PRURITUS [None]
  - RASH PAPULAR [None]
  - SKIN DISCOLOURATION [None]
  - URTICARIA [None]
